FAERS Safety Report 10391978 (Version 1)
Quarter: 2014Q3

REPORT INFORMATION
  Report Type: Spontaneous
  Country: US (occurrence: US)
  Receive Date: 20140819
  Receipt Date: 20140819
  Transmission Date: 20150326
  Serious: Yes (Other)
  Sender: FDA-Public Use
  Company Number: PHHY2014US099863

PATIENT
  Age: 55 Year
  Sex: Male

DRUGS (3)
  1. CICLOSPORIN [Suspect]
     Active Substance: CYCLOSPORINE
     Indication: CHRONIC GRAFT VERSUS HOST DISEASE
  2. CORTICOSTEROIDS [Concomitant]
     Active Substance: CORTICOSTEROID NOS
     Indication: CHRONIC GRAFT VERSUS HOST DISEASE
  3. ANTHRACYCLINES [Concomitant]
     Active Substance: UNSPECIFIED INGREDIENT
     Dosage: 450 MG/M2, UNK

REACTIONS (1)
  - Renal failure chronic [Unknown]
